FAERS Safety Report 6653025-X (Version None)
Quarter: 2010Q1

REPORT INFORMATION
  Report Type: 
  Country: None (occurrence: None)
  Receive Date: 20100326
  Receipt Date: 20100318
  Transmission Date: 20100710
  Serious: Yes (Hospitalization)
  Sender: FDA-Public Use
  Company Number: JP-EISAI INC.-E2090-01097-SPO-JP

PATIENT
  Sex: Female

DRUGS (2)
  1. ZONISAMIDE [Suspect]
     Indication: EPILEPSY
     Route: 048
     Dates: start: 20100113, end: 20100222
  2. BLOOD TRANSFUSION [Concomitant]
     Indication: APLASIA PURE RED CELL
     Dosage: 4 UNITS
     Route: 042
     Dates: start: 20100222, end: 20100222

REACTIONS (1)
  - APLASIA PURE RED CELL [None]
